FAERS Safety Report 5837467-8 (Version None)
Quarter: 2008Q3

REPORT INFORMATION
  Report Type: 
  Country: None (occurrence: None)
  Receive Date: 20080807
  Receipt Date: 20080725
  Transmission Date: 20090109
  Serious: Yes (Other)
  Sender: FDA-Public Use
  Company Number: US-ELI_LILLY_AND_COMPANY-US200806002168

PATIENT
  Age: 58 Year
  Sex: Female

DRUGS (9)
  1. CYMBALTA [Suspect]
     Indication: DEPRESSION
     Dosage: 90 MG, DAILY (1/D)
     Dates: start: 20070901
  2. RELAFEN [Concomitant]
  3. NEURONTIN [Concomitant]
  4. AMBIEN [Concomitant]
  5. VITAMIN B COMPLEX CAP [Concomitant]
  6. FISH OIL [Concomitant]
  7. NEXIUM [Concomitant]
  8. CALCIUM [Concomitant]
  9. ASCORBIC ACID [Concomitant]

REACTIONS (1)
  - HEPATIC NEOPLASM MALIGNANT [None]
